FAERS Safety Report 7378861-6 (Version None)
Quarter: 2011Q1

REPORT INFORMATION
  Report Type: 
  Country: None (occurrence: None)
  Receive Date: 20110328
  Receipt Date: 20110315
  Transmission Date: 20110831
  Serious: Yes (Other)
  Sender: FDA-Public Use
  Company Number: PHHY2011US00797

PATIENT
  Sex: Male
  Weight: 183 kg

DRUGS (1)
  1. GLEEVEC [Suspect]
     Dosage: 400 MG, QD
     Route: 048

REACTIONS (2)
  - SPLENOMEGALY [None]
  - WHITE BLOOD CELL COUNT INCREASED [None]
